FAERS Safety Report 8216321-0 (Version None)
Quarter: 2012Q1

REPORT INFORMATION
  Report Type: 
  Country: None (occurrence: None)
  Receive Date: 20120316
  Receipt Date: 20120311
  Transmission Date: 20120608
  Serious: Yes (Death, Other)
  Sender: FDA-Public Use
  Company Number: PHHY2012JP021739

PATIENT
  Age: 64 Year
  Sex: Male
  Weight: 48 kg

DRUGS (11)
  1. CYCLOSPORINE [Suspect]
     Indication: PROPHYLAXIS AGAINST GRAFT VERSUS HOST DISEASE
     Dosage: 3 MG/KG, ON DAY -3 WITH TARGET SERUM CONCENTRATION OF 250 TO 450 NG/ML
  2. MYCOPHENOLATE MOFETIL [Suspect]
     Indication: PROPHYLAXIS AGAINST GRAFT VERSUS HOST DISEASE
     Dosage: 15 MG/KG, UNK
  3. IRRADIATION [Concomitant]
     Dosage: 3 GY, UNK
  4. HYDROXYZINE [Concomitant]
  5. NEUPOGEN [Concomitant]
     Dosage: 300 MG/M2, UNK
  6. ACYCLOVIR [Concomitant]
     Dosage: 1000 MG/DAY FOR 5 WEEKS
  7. ACYCLOVIR [Concomitant]
     Dosage: 200 MG/DAY
  8. LIDOCAINE [Concomitant]
     Dosage: 1 %, UNK
  9. FLUOROQUINOLONES [Concomitant]
     Dosage: UNK UKN, UNK
  10. FLUDARABINE PHOSPHATE [Concomitant]
     Dosage: 40 MG/M2, FOR 5 DAYS (DAY -6 TO DAY -2)
  11. HYDROCORTISONE [Concomitant]

REACTIONS (3)
  - ACUTE GRAFT VERSUS HOST DISEASE IN SKIN [None]
  - ACUTE GRAFT VERSUS HOST DISEASE IN INTESTINE [None]
  - STAPHYLOCOCCAL INFECTION [None]
